FAERS Safety Report 7957691-8 (Version None)
Quarter: 2011Q4

REPORT INFORMATION
  Report Type: 
  Country: None (occurrence: None)
  Receive Date: 20111205
  Receipt Date: 20111129
  Transmission Date: 20120403
  Serious: Yes (Other)
  Sender: FDA-Public Use
  Company Number: PHHY2011FR103821

PATIENT
  Age: 63 Year
  Sex: Male

DRUGS (7)
  1. SYMBICORT [Suspect]
     Dosage: UNK
  2. ONBREZ [Suspect]
  3. AMLODIPINE BESYLATE [Concomitant]
  4. ASPIRIN [Concomitant]
  5. NICOTINE [Concomitant]
  6. PRAXILENE [Concomitant]
  7. UVEDOSE [Concomitant]

REACTIONS (2)
  - THROAT IRRITATION [None]
  - MALAISE [None]
